FAERS Safety Report 10201502 (Version 2)
Quarter: 2015Q2

REPORT INFORMATION
  Report Type: Spontaneous
  Country: US (occurrence: US)
  Receive Date: 20140528
  Receipt Date: 20150612
  Transmission Date: 20150821
  Serious: Yes (Congenital Anomaly, Other)
  Sender: FDA-Public Use
  Company Number: US-ELI_LILLY_AND_COMPANY-US201405006872

PATIENT

DRUGS (3)
  1. FIORICET [Concomitant]
     Active Substance: ACETAMINOPHEN\BUTALBITAL\CAFFEINE
     Route: 064
  2. PROZAC [Suspect]
     Active Substance: FLUOXETINE HYDROCHLORIDE
     Indication: DEPRESSION
     Route: 064
  3. INDERAL [Concomitant]
     Active Substance: PROPRANOLOL HYDROCHLORIDE
     Route: 064

REACTIONS (5)
  - Congenital urethral anomaly [Unknown]
  - Pulmonary hypoplasia [Unknown]
  - Foetal exposure during pregnancy [Unknown]
  - Congenital oesophageal anomaly [Unknown]
  - Congenital pulmonary artery anomaly [Unknown]
